FAERS Safety Report 8448114-3 (Version None)
Quarter: 2012Q2

REPORT INFORMATION
  Report Type: 
  Country: None (occurrence: None)
  Receive Date: 20120619
  Receipt Date: 20120615
  Transmission Date: 20120825
  Serious: No
  Sender: FDA-Public Use
  Company Number: US-BAYER-2012-060354

PATIENT
  Age: 83 Year
  Sex: Female
  Weight: 75 kg

DRUGS (9)
  1. ALEVE (CAPLET) [Suspect]
     Indication: ARTHRITIS
     Dosage: 1 DF, ONCE
     Route: 048
     Dates: start: 20120615, end: 20120615
  2. OMEPRAZOLE [Concomitant]
  3. TRILIPIX [Concomitant]
  4. VITAMIN TAB [Concomitant]
  5. ALGIN [Concomitant]
  6. SYNTHROID [Concomitant]
  7. DIOVAN [Concomitant]
  8. ADVAIR DISKUS 100/50 [Concomitant]
  9. TOPROL-XL [Concomitant]

REACTIONS (2)
  - DIARRHOEA [None]
  - ABDOMINAL DISCOMFORT [None]
